FAERS Safety Report 13998144 (Version 3)
Quarter: 2017Q4

REPORT INFORMATION
  Report Type: Report from Study
  Country: DE (occurrence: CO)
  Receive Date: 20170921
  Receipt Date: 20171003
  Transmission Date: 20180321
  Serious: Yes (Hospitalization, Other)
  Sender: FDA-Public Use
  Company Number: DE-ACTELION-A-US2017-159798

PATIENT
  Sex: Female

DRUGS (1)
  1. VENTAVIS [Suspect]
     Active Substance: ILOPROST
     Indication: PULMONARY ARTERIAL HYPERTENSION
     Dosage: 1 DF, 6X/DAY
     Route: 055
     Dates: start: 20170224

REACTIONS (7)
  - Cough [Recovered/Resolved]
  - Immunodeficiency [Not Recovered/Not Resolved]
  - Intentional product misuse [Unknown]
  - Joint stiffness [Recovered/Resolved]
  - Amnesia [Not Recovered/Not Resolved]
  - Polyarthritis [Recovered/Resolved]
  - Pain [Recovered/Resolved]
